FAERS Safety Report 10717845 (Version 4)
Quarter: 2015Q3

REPORT INFORMATION
  Report Type: Report from Study
  Country: US (occurrence: US)
  Receive Date: 20150116
  Receipt Date: 20150819
  Transmission Date: 20151125
  Serious: No
  Sender: FDA-Public Use
  Company Number: US-GILEAD-2015-0132212

PATIENT
  Age: 61 Year
  Sex: Male

DRUGS (3)
  1. ORENITRAM [Suspect]
     Active Substance: TREPROSTINIL
     Indication: PRODUCT USED FOR UNKNOWN INDICATION
     Route: 065
  2. AMBRISENTAN [Suspect]
     Active Substance: AMBRISENTAN
     Indication: PRODUCT USED FOR UNKNOWN INDICATION
     Dosage: 5 MG, QD
     Route: 065
     Dates: start: 20130619
  3. ADCIRCA [Concomitant]
     Active Substance: TADALAFIL

REACTIONS (8)
  - Abdominal pain upper [Unknown]
  - Pain in extremity [Unknown]
  - Dry mouth [Unknown]
  - Flushing [Unknown]
  - Lip dry [Unknown]
  - Malaise [Unknown]
  - Headache [Unknown]
  - Vomiting [Unknown]
